FAERS Safety Report 23883493 (Version 1)
Quarter: 2024Q2

REPORT INFORMATION
  Report Type: Spontaneous
  Country: TR (occurrence: TR)
  Receive Date: 20240522
  Receipt Date: 20240522
  Transmission Date: 20240716
  Serious: Yes (Hospitalization, Other)
  Sender: FDA-Public Use
  Company Number: TR-AJANTA-2024AJA00092

PATIENT
  Age: 7 Year
  Sex: Female

DRUGS (4)
  1. RISPERIDONE [Suspect]
     Active Substance: RISPERIDONE
     Indication: Obstructive sleep apnoea syndrome
  2. RISPERIDONE [Suspect]
     Active Substance: RISPERIDONE
  3. RISPERIDONE [Suspect]
     Active Substance: RISPERIDONE
     Dosage: TABLESPOON
  4. MELATONIN [Concomitant]
     Active Substance: MELATONIN

REACTIONS (4)
  - Accidental exposure to product [Unknown]
  - Dystonia [Unknown]
  - Overdose [Unknown]
  - Drug ineffective [Unknown]
